FAERS Safety Report 5741806-6 (Version None)
Quarter: 2008Q2

REPORT INFORMATION
  Report Type: 
  Country: None (occurrence: None)
  Receive Date: 20080515
  Receipt Date: 20080515
  Transmission Date: 20081010
  Serious: Yes (Hospitalization)
  Sender: FDA-Public Use
  Company Number: None

PATIENT
  Age: 45 Year
  Sex: Female
  Weight: 68 kg

DRUGS (10)
  1. LINEZOLID [Suspect]
     Indication: WOUND INFECTION
     Dosage: LINEZOLID TWICE DAILY ORAL/IV
     Route: 048
     Dates: start: 20080425
  2. LINEZOLID [Suspect]
     Indication: WOUND INFECTION
     Dosage: LINEZOLID TWICE DAILY ORAL/IV
     Route: 048
     Dates: start: 20080426
  3. LINEZOLID [Suspect]
     Indication: WOUND INFECTION
     Dosage: LINEZOLID TWICE DAILY ORAL/IV
     Route: 048
     Dates: start: 20080430
  4. LINEZOLID [Suspect]
     Indication: WOUND INFECTION
     Dosage: LINEZOLID TWICE DAILY ORAL/IV
     Route: 048
     Dates: start: 20080501
  5. METOPROLOL TARTRATE [Concomitant]
  6. FAMOTIDINE [Concomitant]
  7. ZONISAMIDE [Concomitant]
  8. ARIPIPRAZOLE [Concomitant]
  9. LEVETIRACETAM [Concomitant]
  10. CLONAZEPAM [Concomitant]

REACTIONS (2)
  - CONDITION AGGRAVATED [None]
  - CONVULSION [None]
